FAERS Safety Report 6505939-9 (Version None)
Quarter: 2009Q4

REPORT INFORMATION
  Report Type: 
  Country: None (occurrence: None)
  Receive Date: 20091217
  Receipt Date: 20091217
  Transmission Date: 20100525
  Serious: Yes (Other)
  Sender: FDA-Public Use
  Company Number: None

PATIENT
  Sex: Female
  Weight: 58.9676 kg

DRUGS (1)
  1. PYRIDOSTIGMINE BROMIDE [Suspect]
     Indication: SYSTEMIC LUPUS ERYTHEMATOSUS
     Dosage: 60MG ONE TAB Q AM PO
     Route: 048
     Dates: start: 20090513, end: 20090523

REACTIONS (3)
  - HALLUCINATIONS, MIXED [None]
  - SLEEP TALKING [None]
  - SOMNAMBULISM [None]
